FAERS Safety Report 13754458 (Version 6)
Quarter: 2021Q1

REPORT INFORMATION
  Report Type: Report from Study
  Country: US (occurrence: US)
  Receive Date: 20170714
  Receipt Date: 20210307
  Transmission Date: 20210419
  Serious: Yes (Hospitalization, Other)
  Sender: FDA-Public Use
  Company Number: US-SA-2017SA087430

PATIENT
  Age: 55 Year
  Sex: Female

DRUGS (9)
  1. ACICLOVIR [Concomitant]
     Active Substance: ACYCLOVIR
     Dosage: 200 MG,BID
     Route: 048
     Dates: start: 20170228
  2. IBUPROFEN. [Suspect]
     Active Substance: IBUPROFEN
     Route: 065
  3. ALEMTUZUMAB [Suspect]
     Active Substance: ALEMTUZUMAB
     Indication: MULTIPLE SCLEROSIS
     Dosage: 12 MG,QD
     Route: 041
     Dates: start: 20170417, end: 20170421
  4. ZOFRAN [Concomitant]
     Active Substance: ONDANSETRON HYDROCHLORIDE
     Indication: NAUSEA
     Dosage: 1 DF,Q8H
     Route: 048
     Dates: start: 20170228
  5. ALEVE [Concomitant]
     Active Substance: NAPROXEN SODIUM
     Dosage: UNK UNK,PRN
  6. BACLOFEN. [Concomitant]
     Active Substance: BACLOFEN
     Dosage: UNK UNK,HS
  7. ZOFRAN [Concomitant]
     Active Substance: ONDANSETRON HYDROCHLORIDE
     Indication: VOMITING
  8. TEMAZEPAM. [Concomitant]
     Active Substance: TEMAZEPAM
     Dosage: 15 MG,UNK
     Route: 048
     Dates: start: 20170228
  9. VITAMIN D3 [Concomitant]
     Active Substance: CHOLECALCIFEROL
     Indication: VITAMIN D DEFICIENCY
     Dosage: 1 DF,QD
     Route: 048

REACTIONS (39)
  - Memory impairment [Not Recovered/Not Resolved]
  - Urinary hesitation [Recovered/Resolved]
  - Musculoskeletal stiffness [Recovered/Resolved]
  - Arthralgia [Recovered/Resolved]
  - Rash maculo-papular [Unknown]
  - Weight decreased [Unknown]
  - Night sweats [Recovered/Resolved]
  - Dizziness [Recovered/Resolved]
  - Balance disorder [Recovered/Resolved]
  - Rash pruritic [Recovered/Resolved]
  - Pollakiuria [Recovered/Resolved]
  - Urinary tract infection [Recovered/Resolved]
  - Rash erythematous [Recovered/Resolved]
  - Fluid retention [Unknown]
  - Joint swelling [Unknown]
  - Amnesia [Recovered/Resolved]
  - Rash erythematous [Recovered/Resolved]
  - Temperature intolerance [Recovered/Resolved]
  - Dry skin [Recovered/Resolved]
  - Urticaria [Recovered/Resolved]
  - Arthropod bite [Unknown]
  - Blood pressure increased [Unknown]
  - Coordination abnormal [Recovered/Resolved]
  - Acute kidney injury [Unknown]
  - Loss of consciousness [Recovered/Resolved]
  - Lymphadenopathy [Recovered/Resolved]
  - Abdominal discomfort [Unknown]
  - Chapped lips [Recovering/Resolving]
  - Angiopathy [Unknown]
  - Dyspepsia [Recovered/Resolved]
  - Muscle spasms [Recovered/Resolved]
  - Abdominal pain [Unknown]
  - Dehydration [Unknown]
  - Anaemia [Unknown]
  - Rash [Unknown]
  - Blood potassium decreased [Unknown]
  - Diarrhoea [Recovered/Resolved]
  - Hypersensitivity vasculitis [Recovered/Resolved]
  - Fall [Unknown]

NARRATIVE: CASE EVENT DATE: 2017
